FAERS Safety Report 18797366 (Version 1)
Quarter: 2021Q1

REPORT INFORMATION
  Report Type: Spontaneous
  Country: JP (occurrence: JP)
  Receive Date: 20210128
  Receipt Date: 20210128
  Transmission Date: 20210419
  Serious: Yes (Hospitalization, Disabling)
  Sender: FDA-Public Use
  Company Number: JP-TEVA-2021-JP-000359J

PATIENT
  Age: 40 Year
  Sex: Female

DRUGS (1)
  1. PREDNISOLONE TABLETS 5MG. [Suspect]
     Active Substance: PREDNISOLONE
     Indication: PRODUCT USED FOR UNKNOWN INDICATION
     Route: 065
     Dates: start: 199609

REACTIONS (2)
  - Osteonecrosis [Unknown]
  - Motor dysfunction [Unknown]
